FAERS Safety Report 13381803 (Version 1)
Quarter: 2017Q1

REPORT INFORMATION
  Report Type: Report from Study
  Country: ZA (occurrence: ZA)
  Receive Date: 20170329
  Receipt Date: 20170329
  Transmission Date: 20170429
  Serious: Yes (Death)
  Sender: FDA-Public Use
  Company Number: PHHY2017ZA040853

PATIENT
  Sex: Female

DRUGS (6)
  1. TRAMAHEXAL [Suspect]
     Active Substance: TRAMADOL HYDROCHLORIDE
     Indication: PAIN
     Dosage: 50 MG, UNK
     Route: 048
     Dates: start: 20161118, end: 201701
  2. ATIVAN [Concomitant]
     Active Substance: LORAZEPAM
     Indication: STRESS
     Dosage: 1 MG, UNK
     Route: 048
     Dates: start: 20161118, end: 201701
  3. BETANOID [Concomitant]
     Indication: PRODUCT USED FOR UNKNOWN INDICATION
     Dosage: 0.5 MG, UNK
     Route: 048
     Dates: start: 20161118, end: 201701
  4. OMEZ [Concomitant]
     Active Substance: OMEPRAZOLE
     Indication: ULCER
     Dosage: 20 MG, UNK
     Route: 048
     Dates: start: 20161118, end: 201701
  5. ARCOXIA [Concomitant]
     Active Substance: ETORICOXIB
     Indication: STRESS
     Dosage: 120 MG, UNK
     Route: 048
     Dates: start: 20161118, end: 201701
  6. CLOPAMON [Concomitant]
     Active Substance: METOCLOPRAMIDE
     Indication: PRODUCT USED FOR UNKNOWN INDICATION
     Dosage: 10 MG, UNK
     Route: 048
     Dates: start: 20161118, end: 201701

REACTIONS (1)
  - Breast cancer [Fatal]
